FAERS Safety Report 19640070 (Version 2)
Quarter: 2021Q3

REPORT INFORMATION
  Report Type: Spontaneous
  Country: JP (occurrence: JP)
  Receive Date: 20210730
  Receipt Date: 20210909
  Transmission Date: 20211014
  Serious: Yes (Death)
  Sender: FDA-Public Use
  Company Number: JP-ABBVIE-21K-087-4017914-00

PATIENT
  Age: 83 Year
  Sex: Male
  Weight: 62 kg

DRUGS (21)
  1. LEVOTHYROXINE. [Concomitant]
     Active Substance: LEVOTHYROXINE
     Indication: HYPOTHYROIDISM
     Route: 048
     Dates: end: 20210723
  2. ISTRADEFYLLINE [Concomitant]
     Active Substance: ISTRADEFYLLINE
     Indication: PRODUCT USED FOR UNKNOWN INDICATION
     Route: 048
     Dates: end: 20210723
  3. ADRENALINE [Concomitant]
     Active Substance: EPINEPHRINE
     Route: 028
     Dates: start: 20210725
  4. SAFINAMIDE MESILATE [Concomitant]
     Active Substance: SAFINAMIDE MESYLATE
     Indication: PRODUCT USED FOR UNKNOWN INDICATION
     Route: 048
     Dates: end: 20210723
  5. LEVODOPA AND BENSERAZIDE HYDROCHLORIDE [Concomitant]
     Active Substance: BENSERAZIDE HYDROCHLORIDE\LEVODOPA
     Indication: PRODUCT USED FOR UNKNOWN INDICATION
     Route: 048
     Dates: end: 20210720
  6. NORADRENALINE [Concomitant]
     Active Substance: NOREPINEPHRINE
     Indication: PRODUCT USED FOR UNKNOWN INDICATION
     Dates: start: 20210724
  7. ADRENALINE [Concomitant]
     Active Substance: EPINEPHRINE
     Route: 028
     Dates: start: 20210725, end: 20210725
  8. DOMPERIDONE [Concomitant]
     Active Substance: DOMPERIDONE
     Indication: PROPHYLAXIS
     Route: 048
  9. ADRENALINE [Concomitant]
     Active Substance: EPINEPHRINE
     Route: 028
     Dates: start: 20210725, end: 20210725
  10. ADRENALINE [Concomitant]
     Active Substance: EPINEPHRINE
     Indication: PRODUCT USED FOR UNKNOWN INDICATION
     Route: 028
     Dates: start: 20210725, end: 20210725
  11. MAGNESIUM OXIDE. [Concomitant]
     Active Substance: MAGNESIUM OXIDE
     Indication: CONSTIPATION
     Route: 048
     Dates: end: 20210723
  12. ADRENALINE [Concomitant]
     Active Substance: EPINEPHRINE
     Route: 028
     Dates: start: 20210725, end: 20210725
  13. ADRENALINE [Concomitant]
     Active Substance: EPINEPHRINE
     Route: 028
     Dates: start: 20210725, end: 20210725
  14. ADRENALINE [Concomitant]
     Active Substance: EPINEPHRINE
     Route: 028
     Dates: start: 20210725, end: 20210725
  15. DUODOPA [Suspect]
     Active Substance: CARBIDOPA\LEVODOPA
     Indication: PARKINSON^S DISEASE
     Dosage: MD: 12 ML?CD: 3.2 ML/HR?ED: 2.0 ML/UNIT
     Route: 050
     Dates: start: 20210721, end: 20210725
  16. DOPAMINE HYDROCHLORIDE. [Concomitant]
     Active Substance: DOPAMINE HYDROCHLORIDE
     Indication: PRODUCT USED FOR UNKNOWN INDICATION
     Dates: start: 20210724
  17. DUODOPA [Suspect]
     Active Substance: CARBIDOPA\LEVODOPA
  18. ENTACAPONE. [Concomitant]
     Active Substance: ENTACAPONE
     Indication: PRODUCT USED FOR UNKNOWN INDICATION
     Route: 048
     Dates: end: 20210720
  19. TADALAFIL. [Concomitant]
     Active Substance: TADALAFIL
     Indication: DYSURIA
     Route: 048
     Dates: end: 20210723
  20. PERGOLIDE MESILATE [Concomitant]
     Indication: PRODUCT USED FOR UNKNOWN INDICATION
     Route: 048
     Dates: end: 20210723
  21. ADRENALINE [Concomitant]
     Active Substance: EPINEPHRINE
     Route: 028
     Dates: start: 20210725, end: 20210725

REACTIONS (10)
  - Vomiting [Fatal]
  - Asphyxia [Fatal]
  - Multiple organ dysfunction syndrome [Fatal]
  - Hypoxic-ischaemic encephalopathy [Fatal]
  - Hypoxic-ischaemic encephalopathy [Fatal]
  - Ileus paralytic [Unknown]
  - Chronic sinusitis [Unknown]
  - Renal cyst [Unknown]
  - Pneumonia aspiration [Fatal]
  - Aspiration [Fatal]

NARRATIVE: CASE EVENT DATE: 2021
